FAERS Safety Report 9224885 (Version 1)
Quarter: 2013Q2

REPORT INFORMATION
  Report Type: Spontaneous
  Country: US (occurrence: None)
  Receive Date: 20130409
  Receipt Date: 20130409
  Transmission Date: 20140414
  Serious: Yes (Other)
  Sender: FDA-Public Use
  Company Number: None

PATIENT
  Age: 31 Year
  Sex: Male

DRUGS (3)
  1. REVLIMID [Suspect]
     Indication: PLASMA CELL MYELOMA
     Dosage: REVLIMID 25MG DAILY X21D/28D ORALY
     Route: 048
     Dates: start: 20130227, end: 20130302
  2. ASA [Concomitant]
  3. DEXAMETHASONE [Concomitant]

REACTIONS (5)
  - Swelling face [None]
  - Pruritus [None]
  - Erythema [None]
  - Ear swelling [None]
  - Angioedema [None]
